FAERS Safety Report 6503164-9 (Version None)
Quarter: 2009Q4

REPORT INFORMATION
  Report Type: 
  Country: None (occurrence: None)
  Receive Date: 20091201
  Receipt Date: 20090831
  Transmission Date: 20100525
  Serious: Yes (Hospitalization)
  Sender: FDA-Public Use
  Company Number: 2009SP023137

PATIENT
  Age: 24 Year
  Sex: Female

DRUGS (1)
  1. NUVARING [Suspect]
     Indication: CONTRACEPTION
     Dosage: 1 DF;QM;VAG
     Route: 067
     Dates: start: 20060419, end: 20060530

REACTIONS (4)
  - CEREBRAL INFARCTION [None]
  - COMPLICATED MIGRAINE [None]
  - HEART RATE IRREGULAR [None]
  - MIGRAINE [None]
